FAERS Safety Report 24626382 (Version 2)
Quarter: 2025Q1

REPORT INFORMATION
  Report Type: Report from Study
  Country: US (occurrence: US)
  Receive Date: 20241115
  Receipt Date: 20250321
  Transmission Date: 20250409
  Serious: No
  Sender: TAKEDA
  Company Number: US-TAKEDA-2024TUS112950

PATIENT
  Age: 66 Year
  Sex: Male

DRUGS (2)
  1. GLASSIA [Suspect]
     Active Substance: .ALPHA.1-PROTEINASE INHIBITOR HUMAN
     Indication: Alpha-1 antitrypsin deficiency
     Dosage: UNK, 1/WEEK
  2. GLASSIA [Suspect]
     Active Substance: .ALPHA.1-PROTEINASE INHIBITOR HUMAN

REACTIONS (4)
  - Lacrimation increased [Unknown]
  - Tremor [Unknown]
  - Insomnia [Unknown]
  - Nausea [Unknown]

NARRATIVE: CASE EVENT DATE: 20241107
